APPROVED DRUG PRODUCT: FLUOCINOLONE ACETONIDE
Active Ingredient: FLUOCINOLONE ACETONIDE
Strength: 0.01%
Dosage Form/Route: OIL;TOPICAL
Application: A201764 | Product #001
Applicant: AMNEAL PHARMACEUTICALS LLC
Approved: Oct 17, 2011 | RLD: No | RS: No | Type: DISCN